FAERS Safety Report 21768584 (Version 3)
Quarter: 2023Q2

REPORT INFORMATION
  Report Type: Spontaneous
  Country: US (occurrence: US)
  Receive Date: 20221222
  Receipt Date: 20230622
  Transmission Date: 20230721
  Serious: No
  Sender: FDA-Public Use
  Company Number: US-SA-SAC20221221000145

PATIENT
  Age: 47 Year
  Sex: Female

DRUGS (1)
  1. DUPIXENT [Suspect]
     Active Substance: DUPILUMAB
     Indication: Asthma
     Dosage: 300 MG, OTHER
     Route: 058
     Dates: start: 20221219

REACTIONS (7)
  - Peripheral swelling [Unknown]
  - Feeling hot [Unknown]
  - Pain in extremity [Unknown]
  - Erythema [Unknown]
  - Off label use [Unknown]
  - Injection site pain [Unknown]
  - Injection site coldness [Unknown]

NARRATIVE: CASE EVENT DATE: 20221219
